FAERS Safety Report 15017647 (Version 2)
Quarter: 2018Q3

REPORT INFORMATION
  Report Type: Spontaneous
  Country: DE (occurrence: DE)
  Receive Date: 20180615
  Receipt Date: 20180813
  Transmission Date: 20181010
  Serious: Yes (Hospitalization, Other)
  Sender: FDA-Public Use
  Company Number: DE-ELI_LILLY_AND_COMPANY-DE201804014302

PATIENT
  Sex: Female
  Weight: 73.7 kg

DRUGS (7)
  1. VITAMIN D [Concomitant]
     Active Substance: CHOLECALCIFEROL
  2. PANTOPRAZOL                        /01263201/ [Concomitant]
     Active Substance: PANTOPRAZOLE
     Dosage: 40 MG, DAILY
  3. METOPROLOL. [Concomitant]
     Active Substance: METOPROLOL
     Dosage: 47.5 MG, DAILY
  4. XIPAMID [Concomitant]
     Active Substance: XIPAMIDE
     Dosage: 10 MG, DAILY
  5. OLUMIANT [Suspect]
     Active Substance: BARICITINIB
     Indication: PRODUCT USED FOR UNKNOWN INDICATION
     Dosage: 2 MG, DAILY
     Route: 048
  6. ENOXAPARIN [Concomitant]
     Active Substance: ENOXAPARIN
     Dosage: 40 MG, BID
  7. PREDNISOLON                        /00016201/ [Concomitant]
     Active Substance: PREDNISOLONE
     Dosage: 2 MG, DAILY

REACTIONS (8)
  - Hypokalaemia [Recovered/Resolved]
  - Gastrointestinal necrosis [Recovered/Resolved]
  - Atrial fibrillation [Not Recovered/Not Resolved]
  - Enteritis [Recovered/Resolved]
  - Joint swelling [Recovered/Resolved]
  - Oral candidiasis [Recovered/Resolved]
  - Haematoma [Recovered/Resolved]
  - Flatulence [Recovered/Resolved]
